FAERS Safety Report 4790345-8 (Version None)
Quarter: 2005Q4

REPORT INFORMATION
  Report Type: 
  Country: None (occurrence: None)
  Receive Date: 20051005
  Receipt Date: 20050926
  Transmission Date: 20060501
  Serious: Yes (Disabling)
  Sender: FDA-Public Use
  Company Number: 200408192

PATIENT
  Age: 56 Year
  Sex: Female

DRUGS (26)
  1. BOTOX [Suspect]
     Indication: FACIAL SPASM
     Dates: start: 19950101
  2. BOTOX [Suspect]
     Indication: FACIAL SPASM
     Dosage: 35 UNITS ONCE IM
     Route: 030
     Dates: start: 20020228, end: 20020228
  3. BOTOX [Suspect]
     Indication: FACIAL SPASM
     Dosage: 37.5 UNITS ONCE IM
     Route: 030
     Dates: start: 20020813, end: 20020813
  4. CELEBREX [Concomitant]
  5. PREVACID [Concomitant]
  6. ACIPHEX [Concomitant]
  7. VALTREX [Concomitant]
  8. PREDNISONE [Concomitant]
  9. PRILOSEC [Concomitant]
  10. ACYCLOVIR [Concomitant]
  11. ALPRAZOLAM [Concomitant]
  12. HYOSCYAMINE [Concomitant]
  13. NORTRIPTYLINE HCL [Concomitant]
  14. MONODOX [Concomitant]
  15. ESTRATEST H.S. [Concomitant]
  16. CEPHALEXIN [Concomitant]
  17. ZYRTEC [Concomitant]
  18. CLOBETASOL [Concomitant]
  19. NEURONTIN [Concomitant]
  20. MAXALT [Concomitant]
  21. PREMARIN [Concomitant]
  22. ZANTAC [Concomitant]
  23. CARAFATE [Concomitant]
  24. ATACAND [Concomitant]
  25. AXERT [Concomitant]
  26. FIORICET W/ CODEINE [Concomitant]

REACTIONS (31)
  - ANXIETY [None]
  - ASTHENIA [None]
  - BALANCE DISORDER [None]
  - BURNING SENSATION [None]
  - DENTAL DISCOMFORT [None]
  - DIFFICULTY IN WALKING [None]
  - DROOLING [None]
  - DYSARTHRIA [None]
  - EXOSTOSIS [None]
  - EYE INFLAMMATION [None]
  - EYELID PTOSIS [None]
  - FACIAL DYSMORPHISM [None]
  - FACIAL PALSY [None]
  - FACIAL SPASM [None]
  - HEADACHE [None]
  - HYPOAESTHESIA [None]
  - INTERVERTEBRAL DISC PROTRUSION [None]
  - MASKED FACIES [None]
  - MIGRAINE [None]
  - MUSCLE CONTRACTIONS INVOLUNTARY [None]
  - MUSCLE TWITCHING [None]
  - MUSCULAR WEAKNESS [None]
  - MUSCULOSKELETAL STIFFNESS [None]
  - NECK PAIN [None]
  - NEUROPATHY PERIPHERAL [None]
  - PHOTOSENSITIVITY REACTION [None]
  - PROCEDURAL COMPLICATION [None]
  - ROAD TRAFFIC ACCIDENT [None]
  - SCAR [None]
  - SHOULDER PAIN [None]
  - SPINAL OSTEOARTHRITIS [None]
